FAERS Safety Report 14241016 (Version 1)
Quarter: 2017Q4

REPORT INFORMATION
  Report Type: Other
  Country: IT (occurrence: US)
  Receive Date: 20171130
  Receipt Date: 20171130
  Transmission Date: 20180321
  Serious: No
  Sender: FDA-Public Use
  Company Number: IT-LEADIANT BIOSCIENCES INC-2017STPI000319

PATIENT
  Age: 62 Year
  Sex: Male

DRUGS (4)
  1. MATULANE [Suspect]
     Active Substance: PROCARBAZINE HYDROCHLORIDE
     Indication: GLIOMA
     Dosage: 100 MG, QD
     Route: 048
     Dates: start: 20170127, end: 20170209
  2. LOMUSTINA [Suspect]
     Active Substance: LOMUSTINE
     Indication: GLIOMA
     Dosage: 160 MG, CYCLICAL
     Route: 048
     Dates: start: 20170120, end: 20170120
  3. ONDANSETRON [Concomitant]
     Active Substance: ONDANSETRON
     Indication: PRODUCT USED FOR UNKNOWN INDICATION
  4. VINCRISTINE TEVA [Suspect]
     Active Substance: VINCRISTINE
     Indication: GLIOMA
     Dosage: 1.5 MG, CYCLICAL
     Route: 041
     Dates: start: 20170120, end: 20170120

REACTIONS (2)
  - Thrombocytopenia [Recovered/Resolved]
  - Leukopenia [Recovered/Resolved]

NARRATIVE: CASE EVENT DATE: 20170228
